FAERS Safety Report 15949683 (Version 1)
Quarter: 2019Q1

REPORT INFORMATION
  Report Type: Spontaneous
  Country: US (occurrence: US)
  Receive Date: 20190208
  Receipt Date: 20190208
  Transmission Date: 20190417
  Serious: No
  Sender: FDA-Public Use
  Company Number: None

PATIENT
  Age: 45 Year
  Sex: Female

DRUGS (4)
  1. METOPROLOL. [Concomitant]
     Active Substance: METOPROLOL
  2. FNOFIBRATE [Concomitant]
  3. REPATHA [Suspect]
     Active Substance: EVOLOCUMAB
     Dates: start: 201812
  4. CRESTOR [Concomitant]
     Active Substance: ROSUVASTATIN CALCIUM

REACTIONS (1)
  - Nausea [None]

NARRATIVE: CASE EVENT DATE: 20181201
